FAERS Safety Report 6302957-0 (Version None)
Quarter: 2009Q3

REPORT INFORMATION
  Report Type: 
  Country: None (occurrence: None)
  Receive Date: 20090810
  Receipt Date: 20090803
  Transmission Date: 20100115
  Serious: Yes (Life-Threatening)
  Sender: FDA-Public Use
  Company Number: B0587611A

PATIENT
  Sex: Female
  Weight: 66 kg

DRUGS (1)
  1. AUGMENTIN [Suspect]
     Indication: SOFT TISSUE INFECTION
     Dosage: 4.4G TWICE PER DAY
     Route: 042
     Dates: start: 20090704, end: 20090709

REACTIONS (2)
  - ANURIA [None]
  - TUBULOINTERSTITIAL NEPHRITIS [None]
